FAERS Safety Report 23667563 (Version 3)
Quarter: 2024Q2

REPORT INFORMATION
  Report Type: Report from Study
  Country: DE (occurrence: DE)
  Receive Date: 20240325
  Receipt Date: 20240402
  Transmission Date: 20240716
  Serious: Yes (Other)
  Sender: FDA-Public Use
  Company Number: DE-MYLANLABS-2024M1026952

PATIENT
  Sex: Female

DRUGS (1)
  1. GLATIRAMER ACETATE [Suspect]
     Active Substance: GLATIRAMER ACETATE
     Indication: Multiple sclerosis
     Dosage: UNK UNK, 3XW (40 MILLIGRAM PER MILLILITRE)
     Route: 058
     Dates: start: 20220613, end: 20230701

REACTIONS (5)
  - Multiple sclerosis relapse [Recovered/Resolved]
  - Pruritus [Unknown]
  - Erythema [Unknown]
  - Skin reaction [Unknown]
  - Liquid product physical issue [Unknown]

NARRATIVE: CASE EVENT DATE: 20230101
